FAERS Safety Report 19014104 (Version 1)
Quarter: 2021Q1

REPORT INFORMATION
  Report Type: Other
  Country: AT (occurrence: AT)
  Receive Date: 20210316
  Receipt Date: 20210316
  Transmission Date: 20210420
  Serious: Yes (Other)
  Sender: FDA-Public Use
  Company Number: AT-ROCHE-2684527

PATIENT
  Sex: Female

DRUGS (3)
  1. PERTUZUMAB. [Suspect]
     Active Substance: PERTUZUMAB
     Indication: HER2 POSITIVE BREAST CANCER
     Dosage: CUMULATIVE DOSE WAS 2100MG [1680?3360]
     Route: 065
  2. TRASTUZUMAB. [Suspect]
     Active Substance: TRASTUZUMAB
     Indication: HER2 POSITIVE BREAST CANCER
     Route: 065
  3. SB3 [Concomitant]
     Indication: HER2 POSITIVE BREAST CANCER

REACTIONS (8)
  - Alopecia [Unknown]
  - Cardiotoxicity [Unknown]
  - Diarrhoea [Unknown]
  - Polyneuropathy [Unknown]
  - Neutropenia [Unknown]
  - Hypersensitivity [Unknown]
  - Decreased appetite [Unknown]
  - Infection [Unknown]
